FAERS Safety Report 11544158 (Version 1)
Quarter: 2015Q3

REPORT INFORMATION
  Report Type: Report from Study
  Country: US (occurrence: US)
  Receive Date: 20150924
  Receipt Date: 20150924
  Transmission Date: 20151125
  Serious: Yes (Other)
  Sender: FDA-Public Use
  Company Number: US-AMGEN-USASP2015097665

PATIENT
  Sex: Male

DRUGS (2)
  1. ENBREL [Suspect]
     Active Substance: ETANERCEPT
     Indication: PSORIATIC ARTHROPATHY
  2. ENBREL [Suspect]
     Active Substance: ETANERCEPT
     Indication: PSORIASIS
     Dosage: UNK
     Route: 065

REACTIONS (7)
  - Cardiac operation [Unknown]
  - Cardiac disorder [Unknown]
  - Stent placement [Unknown]
  - Sinusitis [Unknown]
  - Psoriasis [Recovered/Resolved]
  - Vascular graft [Unknown]
  - Myocardial infarction [Unknown]

NARRATIVE: CASE EVENT DATE: 1997
